FAERS Safety Report 9205443 (Version 2)
Quarter: 2013Q2

REPORT INFORMATION
  Report Type: Spontaneous
  Country: US (occurrence: US)
  Receive Date: 20130403
  Receipt Date: 20130626
  Transmission Date: 20140414
  Serious: No
  Sender: FDA-Public Use
  Company Number: US-009507513-1304USA000552

PATIENT
  Age: 23 Year
  Sex: Female
  Weight: 108.84 kg

DRUGS (1)
  1. IMPLANON [Suspect]
     Indication: CONTRACEPTION
     Dosage: UPPER RIGHT ARM
     Route: 059
     Dates: start: 20111229

REACTIONS (2)
  - Implant site pain [Unknown]
  - Device dislocation [Unknown]
